FAERS Safety Report 4703780-0 (Version None)
Quarter: 2005Q2

REPORT INFORMATION
  Report Type: 
  Country: None (occurrence: None)
  Receive Date: 20050630
  Receipt Date: 20050620
  Transmission Date: 20051028
  Serious: Yes (Other)
  Sender: FDA-Public Use
  Company Number: PHEH2005US06943

PATIENT
  Age: 52 Year
  Sex: Female

DRUGS (3)
  1. ZELNORM [Suspect]
     Indication: IRRITABLE BOWEL SYNDROME
     Dosage: 6 MG, BID
     Route: 048
     Dates: start: 20050528
  2. MIRALAX [Concomitant]
  3. NEXIUM [Concomitant]

REACTIONS (2)
  - ABDOMINAL HERNIA [None]
  - HIATUS HERNIA [None]
